FAERS Safety Report 10199371 (Version 1)
Quarter: 2014Q2

REPORT INFORMATION
  Report Type: Spontaneous
  Country: US (occurrence: None)
  Receive Date: 20140523
  Receipt Date: 20140523
  Transmission Date: 20141212
  Serious: No
  Sender: FDA-Public Use
  Company Number: None

PATIENT
  Age: 49 Year
  Sex: Female
  Weight: 85.28 kg

DRUGS (6)
  1. SUPREP 17.5G/3.13G/1.6 PER 6 OZ. BRAINTREE [Suspect]
     Indication: BOWEL PREPARATION
     Route: 048
     Dates: start: 20140519, end: 20140520
  2. LOSARTAN [Concomitant]
  3. LEVOTHYROXINE [Concomitant]
  4. PROVASTATIN [Concomitant]
  5. HCTZ [Concomitant]
  6. VITAMIN D [Concomitant]

REACTIONS (5)
  - Nausea [None]
  - Vomiting [None]
  - Chills [None]
  - Hyperhidrosis [None]
  - Blood pressure increased [None]
